FAERS Safety Report 9778261 (Version 1)
Quarter: 2013Q4

REPORT INFORMATION
  Report Type: Spontaneous
  Country: US (occurrence: US)
  Receive Date: 20131223
  Receipt Date: 20131223
  Transmission Date: 20140711
  Serious: Yes (Hospitalization)
  Sender: FDA-Public Use
  Company Number: US-JNJFOC-20131211230

PATIENT
  Age: 74 Year
  Sex: Female

DRUGS (3)
  1. INVOKANA [Suspect]
     Indication: PRODUCT USED FOR UNKNOWN INDICATION
     Route: 048
  2. INSULIN [Concomitant]
  3. VICTOZA [Concomitant]

REACTIONS (2)
  - Bronchitis [Unknown]
  - Vaginal infection [Recovered/Resolved]
